FAERS Safety Report 19179377 (Version 1)
Quarter: 2021Q2

REPORT INFORMATION
  Report Type: Spontaneous
  Country: US (occurrence: US)
  Receive Date: 20210423
  Receipt Date: 20210423
  Transmission Date: 20210717
  Serious: No
  Sender: FDA-Public Use
  Company Number: None

PATIENT
  Age: 52 Year
  Sex: Female
  Weight: 71.55 kg

DRUGS (11)
  1. TOPIRAMATE. [Concomitant]
     Active Substance: TOPIRAMATE
  2. UBRELVY [Concomitant]
     Active Substance: UBROGEPANT
  3. IBUPROFEN. [Concomitant]
     Active Substance: IBUPROFEN
  4. ATORVASTATIN [Concomitant]
     Active Substance: ATORVASTATIN
  5. VERAPAMIL [Concomitant]
     Active Substance: VERAPAMIL HYDROCHLORIDE
  6. NEUPRO [Concomitant]
     Active Substance: ROTIGOTINE
  7. DEXILANT [Concomitant]
     Active Substance: DEXLANSOPRAZOLE
  8. MIRAPEX [Concomitant]
     Active Substance: PRAMIPEXOLE DIHYDROCHLORIDE
  9. EMGALITY [Suspect]
     Active Substance: GALCANEZUMAB-GNLM
     Indication: MIGRAINE
     Dosage: ?          QUANTITY:1 INJECTION(S);OTHER FREQUENCY:ONCE A MONTH;?
     Route: 058
  10. SINGULAIR [Concomitant]
     Active Substance: MONTELUKAST SODIUM
  11. XYZAL [Concomitant]
     Active Substance: LEVOCETIRIZINE DIHYDROCHLORIDE

REACTIONS (5)
  - Injection site pain [None]
  - Back pain [None]
  - Upper respiratory tract infection [None]
  - Fatigue [None]
  - Dyspnoea [None]

NARRATIVE: CASE EVENT DATE: 20210414
